FAERS Safety Report 24738830 (Version 2)
Quarter: 2024Q4

REPORT INFORMATION
  Report Type: Report from Study
  Country: US (occurrence: US)
  Receive Date: 20241216
  Receipt Date: 20241223
  Transmission Date: 20250115
  Serious: Yes (Other)
  Sender: UCB
  Company Number: US-UCBSA-2024056692

PATIENT
  Age: 5 Year
  Sex: Male
  Weight: 39 kg

DRUGS (2)
  1. FINTEPLA [Suspect]
     Active Substance: FENFLURAMINE
     Indication: Severe myoclonic epilepsy of infancy
     Dosage: 2.5 ML QAM AND 3 ML QPM
     Dates: start: 20220802
  2. FINTEPLA [Suspect]
     Active Substance: FENFLURAMINE
     Dosage: 12.1 MILLIGRAM, ONCE DAILY (QD)
     Dates: start: 20241209

REACTIONS (2)
  - Seizure [Not Recovered/Not Resolved]
  - Tricuspid valve incompetence [Unknown]

NARRATIVE: CASE EVENT DATE: 20241030
